FAERS Safety Report 4482571-2 (Version None)
Quarter: 2004Q4

REPORT INFORMATION
  Report Type: 
  Country: None (occurrence: None)
  Receive Date: 20041022
  Receipt Date: 20041013
  Transmission Date: 20050328
  Serious: Yes (Other)
  Sender: FDA-Public Use
  Company Number: JP-JNJFOC-20041003536

PATIENT
  Age: 43 Year
  Sex: Male

DRUGS (2)
  1. OFLOXACIN [Suspect]
     Indication: UPPER RESPIRATORY TRACT INFECTION
     Route: 049
  2. VENLAFAXINE HCL [Concomitant]

REACTIONS (2)
  - CHOREOATHETOSIS [None]
  - DYSKINESIA [None]
